FAERS Safety Report 9638066 (Version 2)
Quarter: 2013Q4

REPORT INFORMATION
  Report Type: Spontaneous
  Country: US (occurrence: US)
  Receive Date: 20131022
  Receipt Date: 20131108
  Transmission Date: 20140711
  Serious: No
  Sender: FDA-Public Use
  Company Number: US-PFIZER INC-2013299695

PATIENT
  Age: 69 Year
  Sex: Male
  Weight: 72.56 kg

DRUGS (1)
  1. SUTENT [Suspect]
     Indication: RENAL CANCER METASTATIC
     Dosage: UNK

REACTIONS (2)
  - Breath odour [Unknown]
  - Flatulence [Unknown]
